FAERS Safety Report 22870640 (Version 4)
Quarter: 2025Q1

REPORT INFORMATION
  Report Type: Spontaneous
  Country: CA (occurrence: CA)
  Receive Date: 20230828
  Receipt Date: 20250305
  Transmission Date: 20250408
  Serious: Yes (Death, Other)
  Sender: BRISTOL-MYERS SQUIBB COMPANY
  Company Number: CA-BRISTOL-MYERS SQUIBB COMPANY-2023-119786

PATIENT
  Age: 40 Year
  Sex: Female

DRUGS (433)
  1. ORENCIA [Suspect]
     Active Substance: ABATACEPT
     Indication: Rheumatoid arthritis
     Route: 058
  2. ORENCIA [Suspect]
     Active Substance: ABATACEPT
     Route: 058
  3. ORENCIA [Suspect]
     Active Substance: ABATACEPT
     Indication: Rheumatoid arthritis
     Route: 042
  4. ORENCIA [Suspect]
     Active Substance: ABATACEPT
     Route: 042
  5. ORENCIA [Suspect]
     Active Substance: ABATACEPT
     Route: 042
  6. ORENCIA [Suspect]
     Active Substance: ABATACEPT
     Route: 042
  7. ORENCIA [Suspect]
     Active Substance: ABATACEPT
     Route: 040
  8. ORENCIA [Suspect]
     Active Substance: ABATACEPT
     Route: 040
  9. ORENCIA [Suspect]
     Active Substance: ABATACEPT
     Indication: Rheumatoid arthritis
  10. ORENCIA [Suspect]
     Active Substance: ABATACEPT
  11. ORENCIA [Suspect]
     Active Substance: ABATACEPT
  12. TRIAMCINOLONE ACETONIDE [Concomitant]
     Active Substance: TRIAMCINOLONE ACETONIDE
     Indication: Product used for unknown indication
     Route: 042
  13. NICOTINAMIDE [Concomitant]
     Active Substance: NIACINAMIDE
     Indication: Product used for unknown indication
  14. ACETAMINOPHEN [Concomitant]
     Active Substance: ACETAMINOPHEN
     Indication: Rheumatoid arthritis
  15. ACETAMINOPHEN [Concomitant]
     Active Substance: ACETAMINOPHEN
     Indication: Prostatic specific antigen
  16. ACETAMINOPHEN [Concomitant]
     Active Substance: ACETAMINOPHEN
     Route: 058
  17. ACETAMINOPHEN [Concomitant]
     Active Substance: ACETAMINOPHEN
  18. ACETAMINOPHEN [Concomitant]
     Active Substance: ACETAMINOPHEN
  19. ACETAMINOPHEN [Concomitant]
     Active Substance: ACETAMINOPHEN
  20. ACETAMINOPHEN [Concomitant]
     Active Substance: ACETAMINOPHEN
  21. ACETAMINOPHEN [Concomitant]
     Active Substance: ACETAMINOPHEN
  22. ACETAMINOPHEN AND CODEINE [Concomitant]
     Active Substance: ACETAMINOPHEN\CODEINE PHOSPHATE
     Indication: Product used for unknown indication
  23. ACTEMRA [Concomitant]
     Active Substance: TOCILIZUMAB
     Indication: Rheumatoid arthritis
     Route: 042
  24. ACTEMRA [Concomitant]
     Active Substance: TOCILIZUMAB
  25. ACTEMRA [Concomitant]
     Active Substance: TOCILIZUMAB
     Route: 061
  26. ACTEMRA [Concomitant]
     Active Substance: TOCILIZUMAB
     Route: 058
  27. ACTEMRA [Concomitant]
     Active Substance: TOCILIZUMAB
     Route: 042
  28. ACTEMRA [Concomitant]
     Active Substance: TOCILIZUMAB
     Route: 042
  29. ACTEMRA [Concomitant]
     Active Substance: TOCILIZUMAB
     Route: 042
  30. ACTEMRA [Concomitant]
     Active Substance: TOCILIZUMAB
     Route: 042
  31. ACTEMRA [Concomitant]
     Active Substance: TOCILIZUMAB
  32. ACTEMRA [Concomitant]
     Active Substance: TOCILIZUMAB
     Route: 058
  33. ACTEMRA [Concomitant]
     Active Substance: TOCILIZUMAB
     Route: 058
  34. ACTEMRA [Concomitant]
     Active Substance: TOCILIZUMAB
     Route: 042
  35. ACTEMRA [Concomitant]
     Active Substance: TOCILIZUMAB
     Route: 058
  36. ACTEMRA [Concomitant]
     Active Substance: TOCILIZUMAB
  37. ADALIMUMAB [Concomitant]
     Active Substance: ADALIMUMAB
     Indication: Rheumatoid arthritis
     Route: 058
  38. ADALIMUMAB [Concomitant]
     Active Substance: ADALIMUMAB
     Route: 058
  39. AIMOVIG [Concomitant]
     Active Substance: ERENUMAB-AOOE
     Indication: Migraine
  40. AIMOVIG [Concomitant]
     Active Substance: ERENUMAB-AOOE
  41. AIMOVIG [Concomitant]
     Active Substance: ERENUMAB-AOOE
  42. ALENDRONATE SODIUM\CHOLECALCIFEROL [Concomitant]
     Active Substance: ALENDRONATE SODIUM\CHOLECALCIFEROL
     Indication: Rheumatoid arthritis
  43. ALENDRONIC ACID [Concomitant]
     Active Substance: ALENDRONIC ACID
     Indication: Rheumatoid arthritis
     Route: 048
  44. ALENDRONIC ACID [Concomitant]
     Active Substance: ALENDRONIC ACID
  45. ALENDRONIC ACID [Concomitant]
     Active Substance: ALENDRONIC ACID
     Route: 048
  46. DICLOFENAC SODIUM [Concomitant]
     Active Substance: DICLOFENAC SODIUM
     Indication: Product used for unknown indication
  47. LEFLUNOMIDE [Concomitant]
     Active Substance: LEFLUNOMIDE
     Indication: Rheumatoid arthritis
     Route: 048
  48. LEFLUNOMIDE [Concomitant]
     Active Substance: LEFLUNOMIDE
  49. LEFLUNOMIDE [Concomitant]
     Active Substance: LEFLUNOMIDE
  50. LEFLUNOMIDE [Concomitant]
     Active Substance: LEFLUNOMIDE
  51. PREDNISONE [Concomitant]
     Active Substance: PREDNISONE
     Indication: Rheumatoid arthritis
     Route: 048
  52. PREDNISONE [Concomitant]
     Active Substance: PREDNISONE
  53. PREDNISONE [Concomitant]
     Active Substance: PREDNISONE
     Route: 048
  54. PREDNISONE [Concomitant]
     Active Substance: PREDNISONE
     Route: 048
  55. PREDNISONE [Concomitant]
     Active Substance: PREDNISONE
     Route: 048
  56. PREDNISONE [Concomitant]
     Active Substance: PREDNISONE
  57. PREDNISONE [Concomitant]
     Active Substance: PREDNISONE
     Route: 048
  58. APREMILAST [Concomitant]
     Active Substance: APREMILAST
     Indication: Rheumatoid arthritis
  59. APREMILAST [Concomitant]
     Active Substance: APREMILAST
  60. ARAVA [Concomitant]
     Active Substance: LEFLUNOMIDE
     Indication: Rheumatoid arthritis
  61. ARAVA [Concomitant]
     Active Substance: LEFLUNOMIDE
     Route: 048
  62. ARAVA [Concomitant]
     Active Substance: LEFLUNOMIDE
     Route: 048
  63. ARAVA [Concomitant]
     Active Substance: LEFLUNOMIDE
     Route: 048
  64. ARAVA [Concomitant]
     Active Substance: LEFLUNOMIDE
     Route: 005
  65. ATOMOXETINE [Concomitant]
     Active Substance: ATOMOXETINE
     Indication: Migraine
  66. AZATHIOPRINE SODIUM [Concomitant]
     Active Substance: AZATHIOPRINE SODIUM
     Indication: Product used for unknown indication
  67. BERINERT [Concomitant]
     Active Substance: HUMAN C1-ESTERASE INHIBITOR
     Indication: Product used for unknown indication
  68. BOTULINUM TOXIN TYPE A [Concomitant]
     Active Substance: BOTULINUM TOXIN TYPE A
     Indication: Product used for unknown indication
  69. BUTRANS [Concomitant]
     Active Substance: BUPRENORPHINE
     Indication: Product used for unknown indication
  70. CANDESARTAN [Concomitant]
     Active Substance: CANDESARTAN
     Indication: Migraine
     Route: 048
  71. CELEBREX [Concomitant]
     Active Substance: CELECOXIB
     Indication: Product used for unknown indication
  72. CELEBREX [Concomitant]
     Active Substance: CELECOXIB
     Route: 048
  73. CERTOLIZUMAB PEGOL [Concomitant]
     Active Substance: CERTOLIZUMAB PEGOL
     Indication: Product used for unknown indication
     Route: 058
  74. CERTOLIZUMAB PEGOL [Concomitant]
     Active Substance: CERTOLIZUMAB PEGOL
  75. CERTOLIZUMAB PEGOL [Concomitant]
     Active Substance: CERTOLIZUMAB PEGOL
     Route: 016
  76. CERTOLIZUMAB PEGOL [Concomitant]
     Active Substance: CERTOLIZUMAB PEGOL
     Route: 058
  77. CERTOLIZUMAB PEGOL [Concomitant]
     Active Substance: CERTOLIZUMAB PEGOL
     Route: 058
  78. CERTOLIZUMAB PEGOL [Concomitant]
     Active Substance: CERTOLIZUMAB PEGOL
     Route: 016
  79. CERTOLIZUMAB PEGOL [Concomitant]
     Active Substance: CERTOLIZUMAB PEGOL
  80. CETIRIZINE HYDROCHLORIDE [Concomitant]
     Active Substance: CETIRIZINE HYDROCHLORIDE
     Indication: Rheumatoid arthritis
  81. CETIRIZINE HYDROCHLORIDE [Concomitant]
     Active Substance: CETIRIZINE HYDROCHLORIDE
  82. CETIRIZINE HYDROCHLORIDE [Concomitant]
     Active Substance: CETIRIZINE HYDROCHLORIDE
     Route: 048
  83. CETIRIZINE HYDROCHLORIDE [Concomitant]
     Active Substance: CETIRIZINE HYDROCHLORIDE
     Route: 048
  84. CETIRIZINE HYDROCHLORIDE [Concomitant]
     Active Substance: CETIRIZINE HYDROCHLORIDE
  85. CETIRIZINE HYDROCHLORIDE [Concomitant]
     Active Substance: CETIRIZINE HYDROCHLORIDE
     Route: 048
  86. CETIRIZINE HYDROCHLORIDE [Concomitant]
     Active Substance: CETIRIZINE HYDROCHLORIDE
  87. CETIRIZINE HYDROCHLORIDE [Concomitant]
     Active Substance: CETIRIZINE HYDROCHLORIDE
     Route: 048
  88. CETIRIZINE HYDROCHLORIDE [Concomitant]
     Active Substance: CETIRIZINE HYDROCHLORIDE
  89. CETIRIZINE HYDROCHLORIDE [Concomitant]
     Active Substance: CETIRIZINE HYDROCHLORIDE
     Route: 048
  90. CETIRIZINE HYDROCHLORIDE [Concomitant]
     Active Substance: CETIRIZINE HYDROCHLORIDE
  91. CETIRIZINE HYDROCHLORIDE [Concomitant]
     Active Substance: CETIRIZINE HYDROCHLORIDE
  92. CIMZIA [Concomitant]
     Active Substance: CERTOLIZUMAB PEGOL
     Indication: Rheumatoid arthritis
  93. CIMZIA [Concomitant]
     Active Substance: CERTOLIZUMAB PEGOL
     Indication: Psoriasis
     Route: 058
  94. CIMZIA [Concomitant]
     Active Substance: CERTOLIZUMAB PEGOL
     Route: 058
  95. CIMZIA [Concomitant]
     Active Substance: CERTOLIZUMAB PEGOL
     Route: 058
  96. CIMZIA [Concomitant]
     Active Substance: CERTOLIZUMAB PEGOL
     Route: 058
  97. CIMZIA [Concomitant]
     Active Substance: CERTOLIZUMAB PEGOL
     Route: 058
  98. CIMZIA [Concomitant]
     Active Substance: CERTOLIZUMAB PEGOL
     Route: 005
  99. CIMZIA [Concomitant]
     Active Substance: CERTOLIZUMAB PEGOL
     Route: 058
  100. CIMZIA [Concomitant]
     Active Substance: CERTOLIZUMAB PEGOL
  101. CIMZIA [Concomitant]
     Active Substance: CERTOLIZUMAB PEGOL
     Route: 058
  102. CIMZIA [Concomitant]
     Active Substance: CERTOLIZUMAB PEGOL
     Route: 058
  103. CIMZIA [Concomitant]
     Active Substance: CERTOLIZUMAB PEGOL
  104. CIMZIA [Concomitant]
     Active Substance: CERTOLIZUMAB PEGOL
  105. CIMZIA [Concomitant]
     Active Substance: CERTOLIZUMAB PEGOL
     Route: 058
  106. CIMZIA [Concomitant]
     Active Substance: CERTOLIZUMAB PEGOL
  107. CORTISONE [Concomitant]
     Active Substance: CORTISONE
     Indication: Rheumatoid arthritis
     Route: 058
  108. CORTISONE ACETATE [Concomitant]
     Active Substance: CORTISONE ACETATE
     Indication: Rheumatoid arthritis
     Route: 061
  109. CORTISONE ACETATE [Concomitant]
     Active Substance: CORTISONE ACETATE
     Route: 048
  110. CORTISONE ACETATE [Concomitant]
     Active Substance: CORTISONE ACETATE
  111. CORTISONE ACETATE [Concomitant]
     Active Substance: CORTISONE ACETATE
     Route: 048
  112. CORTISONE ACETATE [Concomitant]
     Active Substance: CORTISONE ACETATE
     Route: 061
  113. COSENTYX [Concomitant]
     Active Substance: SECUKINUMAB
     Indication: Psoriatic arthropathy
  114. COSENTYX [Concomitant]
     Active Substance: SECUKINUMAB
     Indication: Rheumatoid arthritis
     Route: 005
  115. COSENTYX [Concomitant]
     Active Substance: SECUKINUMAB
  116. DESOXIMETASONE [Concomitant]
     Active Substance: DESOXIMETASONE
     Indication: Rheumatoid arthritis
     Route: 003
  117. DESOXIMETASONE [Concomitant]
     Active Substance: DESOXIMETASONE
     Route: 058
  118. DESOXIMETASONE [Concomitant]
     Active Substance: DESOXIMETASONE
  119. DESOXIMETASONE [Concomitant]
     Active Substance: DESOXIMETASONE
     Route: 048
  120. DESOXIMETASONE [Concomitant]
     Active Substance: DESOXIMETASONE
     Route: 058
  121. DESOXIMETASONE [Concomitant]
     Active Substance: DESOXIMETASONE
     Route: 048
  122. DESOXIMETASONE [Concomitant]
     Active Substance: DESOXIMETASONE
     Route: 048
  123. DICLOFENAC DIETHYLAMINE [Concomitant]
     Active Substance: DICLOFENAC DIETHYLAMINE
     Indication: Product used for unknown indication
  124. DICLOFENAC SODIUM [Concomitant]
     Active Substance: DICLOFENAC SODIUM
     Indication: Product used for unknown indication
  125. DOMPERIDONE MALEATE [Concomitant]
     Active Substance: DOMPERIDONE MALEATE
     Indication: Product used for unknown indication
  126. ENBREL [Concomitant]
     Active Substance: ETANERCEPT
     Indication: Rheumatoid arthritis
     Route: 058
  127. ENBREL [Concomitant]
     Active Substance: ETANERCEPT
     Route: 058
  128. ENBREL [Concomitant]
     Active Substance: ETANERCEPT
  129. ENBREL [Concomitant]
     Active Substance: ETANERCEPT
  130. ENBREL [Concomitant]
     Active Substance: ETANERCEPT
     Route: 058
  131. ENBREL [Concomitant]
     Active Substance: ETANERCEPT
  132. ENBREL [Concomitant]
     Active Substance: ETANERCEPT
     Route: 058
  133. ENBREL [Concomitant]
     Active Substance: ETANERCEPT
  134. ENBREL [Concomitant]
     Active Substance: ETANERCEPT
     Route: 058
  135. ERELZI [Concomitant]
     Active Substance: ETANERCEPT-SZZS
     Indication: Rheumatoid arthritis
     Route: 058
  136. ERELZI [Concomitant]
     Active Substance: ETANERCEPT-SZZS
  137. ERELZI [Concomitant]
     Active Substance: ETANERCEPT-SZZS
  138. ERELZI [Concomitant]
     Active Substance: ETANERCEPT-SZZS
  139. FLUMETHASONE [Concomitant]
     Active Substance: FLUMETHASONE
     Indication: Product used for unknown indication
  140. FLUMETHASONE PIVALATE [Concomitant]
     Active Substance: FLUMETHASONE PIVALATE
     Indication: Product used for unknown indication
     Route: 003
  141. FLUMETHASONE PIVALATE [Concomitant]
     Active Substance: FLUMETHASONE PIVALATE
  142. FLUMETHASONE PIVALATE [Concomitant]
     Active Substance: FLUMETHASONE PIVALATE
     Route: 048
  143. FLUMETHASONE PIVALATE [Concomitant]
     Active Substance: FLUMETHASONE PIVALATE
     Route: 048
  144. FLUMETHASONE PIVALATE [Concomitant]
     Active Substance: FLUMETHASONE PIVALATE
     Route: 048
  145. FLUMETHASONE PIVALATE [Concomitant]
     Active Substance: FLUMETHASONE PIVALATE
     Route: 048
  146. FLUMETHASONE PIVALATE [Concomitant]
     Active Substance: FLUMETHASONE PIVALATE
  147. FLUMETHASONE PIVALATE [Concomitant]
     Active Substance: FLUMETHASONE PIVALATE
  148. FLUMETHASONE PIVALATE [Concomitant]
     Active Substance: FLUMETHASONE PIVALATE
  149. FLUMETHASONE PIVALATE [Concomitant]
     Active Substance: FLUMETHASONE PIVALATE
  150. FLUMETHASONE PIVALATE [Concomitant]
     Active Substance: FLUMETHASONE PIVALATE
     Route: 048
  151. FLUMETHASONE PIVALATE [Concomitant]
     Active Substance: FLUMETHASONE PIVALATE
     Route: 003
  152. FLUMETHASONE PIVALATE [Concomitant]
     Active Substance: FLUMETHASONE PIVALATE
  153. FOLIC ACID [Concomitant]
     Active Substance: FOLIC ACID
     Indication: Rheumatoid arthritis
  154. FOLIC ACID [Concomitant]
     Active Substance: FOLIC ACID
     Route: 048
  155. FOLIC ACID [Concomitant]
     Active Substance: FOLIC ACID
     Route: 048
  156. FOLIC ACID [Concomitant]
     Active Substance: FOLIC ACID
     Route: 048
  157. FOLIC ACID [Concomitant]
     Active Substance: FOLIC ACID
     Route: 058
  158. FOLIC ACID [Concomitant]
     Active Substance: FOLIC ACID
  159. FOLIC ACID [Concomitant]
     Active Substance: FOLIC ACID
     Route: 048
  160. FOLIC ACID [Concomitant]
     Active Substance: FOLIC ACID
     Route: 048
  161. FOLIC ACID [Concomitant]
     Active Substance: FOLIC ACID
     Route: 048
  162. FOSAMAX [Concomitant]
     Active Substance: ALENDRONATE SODIUM
     Indication: Rheumatoid arthritis
     Route: 058
  163. FOSAMAX [Concomitant]
     Active Substance: ALENDRONATE SODIUM
     Route: 048
  164. FOSAMAX [Concomitant]
     Active Substance: ALENDRONATE SODIUM
     Route: 005
  165. FOSAMAX [Concomitant]
     Active Substance: ALENDRONATE SODIUM
     Route: 016
  166. FOSAMAX [Concomitant]
     Active Substance: ALENDRONATE SODIUM
  167. HAIR KERATIN AMINO ACIDS GOLD COMPLEX [Concomitant]
     Active Substance: HAIR KERATIN AMINO ACIDS GOLD COMPLEX
     Indication: Product used for unknown indication
  168. GOLD SODIUM THIOMALATE [Concomitant]
     Active Substance: GOLD SODIUM THIOMALATE
     Indication: Product used for unknown indication
  169. GOLIMUMAB [Concomitant]
     Active Substance: GOLIMUMAB
     Indication: Rheumatoid arthritis
  170. GOLIMUMAB [Concomitant]
     Active Substance: GOLIMUMAB
     Indication: Prostatic specific antigen
     Route: 058
  171. GOLIMUMAB [Concomitant]
     Active Substance: GOLIMUMAB
  172. GOLIMUMAB [Concomitant]
     Active Substance: GOLIMUMAB
     Route: 058
  173. HUMIRA [Concomitant]
     Active Substance: ADALIMUMAB
     Indication: Rheumatoid arthritis
     Route: 058
  174. HUMIRA [Concomitant]
     Active Substance: ADALIMUMAB
     Route: 057
  175. HUMIRA [Concomitant]
     Active Substance: ADALIMUMAB
     Route: 058
  176. HUMIRA [Concomitant]
     Active Substance: ADALIMUMAB
     Route: 058
  177. HUMIRA [Concomitant]
     Active Substance: ADALIMUMAB
     Route: 058
  178. HYDROCORTISONE [Concomitant]
     Active Substance: HYDROCORTISONE
     Indication: Product used for unknown indication
  179. HYDROXYCHLOROQUINE [Concomitant]
     Active Substance: HYDROXYCHLOROQUINE
     Indication: Rheumatoid arthritis
  180. HYDROXYCHLOROQUINE [Concomitant]
     Active Substance: HYDROXYCHLOROQUINE
     Route: 048
  181. HYDROXYCHLOROQUINE [Concomitant]
     Active Substance: HYDROXYCHLOROQUINE
     Route: 048
  182. HYDROXYCHLOROQUINE [Concomitant]
     Active Substance: HYDROXYCHLOROQUINE
     Route: 048
  183. HYDROXYCHLOROQUINE [Concomitant]
     Active Substance: HYDROXYCHLOROQUINE
     Route: 048
  184. HYDROXYCHLOROQUINE [Concomitant]
     Active Substance: HYDROXYCHLOROQUINE
     Route: 048
  185. HYDROXYCHLOROQUINE [Concomitant]
     Active Substance: HYDROXYCHLOROQUINE
     Route: 048
  186. HYDROXYCHLOROQUINE [Concomitant]
     Active Substance: HYDROXYCHLOROQUINE
     Route: 058
  187. HYDROXYCHLOROQUINE [Concomitant]
     Active Substance: HYDROXYCHLOROQUINE
  188. HYDROXYCHLOROQUINE [Concomitant]
     Active Substance: HYDROXYCHLOROQUINE
     Route: 048
  189. HYDROXYCHLOROQUINE [Concomitant]
     Active Substance: HYDROXYCHLOROQUINE
     Route: 058
  190. HYDROXYCHLOROQUINE [Concomitant]
     Active Substance: HYDROXYCHLOROQUINE
  191. HYDROXYCHLOROQUINE [Concomitant]
     Active Substance: HYDROXYCHLOROQUINE
  192. HYDROXYCHLOROQUINE [Concomitant]
     Active Substance: HYDROXYCHLOROQUINE
  193. HYDROXYCHLOROQUINE [Concomitant]
     Active Substance: HYDROXYCHLOROQUINE
     Route: 048
  194. HYDROXYCHLOROQUINE [Concomitant]
     Active Substance: HYDROXYCHLOROQUINE
  195. HYDROXYCHLOROQUINE [Concomitant]
     Active Substance: HYDROXYCHLOROQUINE
     Route: 005
  196. HYDROXYCHLOROQUINE [Concomitant]
     Active Substance: HYDROXYCHLOROQUINE
     Route: 048
  197. HYDROXYCHLOROQUINE [Concomitant]
     Active Substance: HYDROXYCHLOROQUINE
  198. HYDROXYCHLOROQUINE [Concomitant]
     Active Substance: HYDROXYCHLOROQUINE
  199. HYDROXYCHLOROQUINE [Concomitant]
     Active Substance: HYDROXYCHLOROQUINE
     Route: 005
  200. HYDROXYCHLOROQUINE [Concomitant]
     Active Substance: HYDROXYCHLOROQUINE
  201. HYDROXYCHLOROQUINE [Concomitant]
     Active Substance: HYDROXYCHLOROQUINE
     Route: 048
  202. HYDROXYCHLOROQUINE [Concomitant]
     Active Substance: HYDROXYCHLOROQUINE
     Route: 048
  203. HYDROXYCHLOROQUINE [Concomitant]
     Active Substance: HYDROXYCHLOROQUINE
  204. HYDROXYCHLOROQUINE SULFATE [Concomitant]
     Active Substance: HYDROXYCHLOROQUINE SULFATE
     Indication: Rheumatoid arthritis
     Route: 048
  205. HYDROXYCHLOROQUINE SULFATE [Concomitant]
     Active Substance: HYDROXYCHLOROQUINE SULFATE
     Route: 048
  206. INFLIXIMAB [Concomitant]
     Active Substance: INFLIXIMAB
     Indication: Rheumatoid arthritis
     Route: 040
  207. INFLIXIMAB [Concomitant]
     Active Substance: INFLIXIMAB
     Route: 040
  208. INFLIXIMAB [Concomitant]
     Active Substance: INFLIXIMAB
     Route: 040
  209. INFLIXIMAB [Concomitant]
     Active Substance: INFLIXIMAB
     Route: 040
  210. INFLIXIMAB [Concomitant]
     Active Substance: INFLIXIMAB
     Route: 040
  211. INFLIXIMAB [Concomitant]
     Active Substance: INFLIXIMAB
     Route: 040
  212. INFLIXIMAB [Concomitant]
     Active Substance: INFLIXIMAB
     Route: 040
  213. INFLIXIMAB [Concomitant]
     Active Substance: INFLIXIMAB
     Route: 040
  214. INFLIXIMAB [Concomitant]
     Active Substance: INFLIXIMAB
     Route: 040
  215. INFLIXIMAB [Concomitant]
     Active Substance: INFLIXIMAB
     Route: 040
  216. KEVZARA [Concomitant]
     Active Substance: SARILUMAB
     Indication: Product used for unknown indication
  217. LAMICTAL [Concomitant]
     Active Substance: LAMOTRIGINE
     Indication: Product used for unknown indication
     Route: 048
  218. LAMICTAL [Concomitant]
     Active Substance: LAMOTRIGINE
     Route: 048
  219. LAMICTAL [Concomitant]
     Active Substance: LAMOTRIGINE
     Route: 048
  220. LAMICTAL [Concomitant]
     Active Substance: LAMOTRIGINE
     Route: 048
  221. LEFLUNOMIDE [Concomitant]
     Active Substance: LEFLUNOMIDE
     Indication: Rheumatoid arthritis
     Route: 048
  222. LEFLUNOMIDE [Concomitant]
     Active Substance: LEFLUNOMIDE
     Route: 048
  223. LEFLUNOMIDE [Concomitant]
     Active Substance: LEFLUNOMIDE
     Route: 048
  224. LEFLUNOMIDE [Concomitant]
     Active Substance: LEFLUNOMIDE
     Route: 048
  225. METHOTREXATE [Concomitant]
     Active Substance: METHOTREXATE
     Indication: Rheumatoid arthritis
     Route: 058
  226. METHOTREXATE [Concomitant]
     Active Substance: METHOTREXATE
     Route: 048
  227. METHOTREXATE [Concomitant]
     Active Substance: METHOTREXATE
     Route: 048
  228. METHOTREXATE [Concomitant]
     Active Substance: METHOTREXATE
     Route: 048
  229. METHOTREXATE [Concomitant]
     Active Substance: METHOTREXATE
     Route: 048
  230. METHOTREXATE [Concomitant]
     Active Substance: METHOTREXATE
  231. METHOTREXATE [Concomitant]
     Active Substance: METHOTREXATE
     Route: 048
  232. METHOTREXATE [Concomitant]
     Active Substance: METHOTREXATE
     Route: 013
  233. METHOTREXATE [Concomitant]
     Active Substance: METHOTREXATE
     Route: 048
  234. METHOTREXATE [Concomitant]
     Active Substance: METHOTREXATE
     Route: 042
  235. METHOTREXATE [Concomitant]
     Active Substance: METHOTREXATE
     Route: 042
  236. METHOTREXATE [Concomitant]
     Active Substance: METHOTREXATE
  237. METHYLPREDNISOLONE [Concomitant]
     Active Substance: METHYLPREDNISOLONE
     Indication: Product used for unknown indication
  238. METHYLPREDNISOLONE SODIUM SUCCINATE [Concomitant]
     Active Substance: METHYLPREDNISOLONE SODIUM SUCCINATE
     Indication: Product used for unknown indication
  239. MINOCYCLINE HYDROCHLORIDE [Concomitant]
     Active Substance: MINOCYCLINE HYDROCHLORIDE
     Indication: Product used for unknown indication
  240. MINOCYCLINE [Concomitant]
     Active Substance: MINOCYCLINE HYDROCHLORIDE
     Indication: Product used for unknown indication
  241. MINOCYCLINE HYDROCHLORIDE [Concomitant]
     Active Substance: MINOCYCLINE HYDROCHLORIDE
     Indication: Product used for unknown indication
  242. MINOCYCLINE HYDROCHLORIDE [Concomitant]
     Active Substance: MINOCYCLINE HYDROCHLORIDE
  243. MYOCHRYSINE [Concomitant]
     Active Substance: GOLD SODIUM THIOMALATE
     Indication: Rheumatoid arthritis
     Route: 030
  244. MYRBETRIQ [Concomitant]
     Active Substance: MIRABEGRON
     Indication: Product used for unknown indication
  245. MYRBETRIQ [Concomitant]
     Active Substance: MIRABEGRON
  246. NAPROXEN [Concomitant]
     Active Substance: NAPROXEN
     Indication: Product used for unknown indication
  247. NAPROXEN [Concomitant]
     Active Substance: NAPROXEN
     Indication: Product used for unknown indication
  248. NAPROXEN SODIUM [Concomitant]
     Active Substance: NAPROXEN SODIUM
     Indication: Rheumatoid arthritis
  249. NUCALA [Concomitant]
     Active Substance: MEPOLIZUMAB
     Indication: Product used for unknown indication
  250. OXYCODONE [Concomitant]
     Active Substance: OXYCODONE
     Indication: Product used for unknown indication
  251. OXYCODONE TEREPHTHALATE [Concomitant]
     Active Substance: OXYCODONE TEREPHTHALATE
     Indication: Product used for unknown indication
  252. PHENYLEPHRINE HYDROCHLORIDE [Concomitant]
     Active Substance: PHENYLEPHRINE HYDROCHLORIDE
     Indication: Rheumatoid arthritis
  253. PHTHALYLSULFATHIAZOLE [Concomitant]
     Active Substance: PHTHALYLSULFATHIAZOLE
     Indication: Rheumatoid arthritis
  254. PHTHALYLSULFATHIAZOLE [Concomitant]
     Active Substance: PHTHALYLSULFATHIAZOLE
     Route: 048
  255. PHTHALYLSULFATHIAZOLE [Concomitant]
     Active Substance: PHTHALYLSULFATHIAZOLE
     Route: 048
  256. PHTHALYLSULFATHIAZOLE [Concomitant]
     Active Substance: PHTHALYLSULFATHIAZOLE
     Route: 058
  257. PHTHALYLSULFATHIAZOLE [Concomitant]
     Active Substance: PHTHALYLSULFATHIAZOLE
     Route: 042
  258. PHTHALYLSULFATHIAZOLE [Concomitant]
     Active Substance: PHTHALYLSULFATHIAZOLE
  259. PHTHALYLSULFATHIAZOLE [Concomitant]
     Active Substance: PHTHALYLSULFATHIAZOLE
     Route: 042
  260. PHTHALYLSULFATHIAZOLE [Concomitant]
     Active Substance: PHTHALYLSULFATHIAZOLE
     Route: 048
  261. PREDNISONE [Concomitant]
     Active Substance: PREDNISONE
     Indication: Rheumatoid arthritis
  262. PREDNISONE [Concomitant]
     Active Substance: PREDNISONE
  263. PREDNISONE [Concomitant]
     Active Substance: PREDNISONE
  264. PREDNISONE [Concomitant]
     Active Substance: PREDNISONE
     Route: 048
  265. PREDNISONE [Concomitant]
     Active Substance: PREDNISONE
     Route: 048
  266. PREDNISONE [Concomitant]
     Active Substance: PREDNISONE
     Route: 048
  267. PREDNISONE [Concomitant]
     Active Substance: PREDNISONE
  268. PREDNISONE [Concomitant]
     Active Substance: PREDNISONE
  269. PREDNISONE [Concomitant]
     Active Substance: PREDNISONE
  270. PREDNISONE [Concomitant]
     Active Substance: PREDNISONE
  271. PSEUDOEPHEDRINE HYDROCHLORIDE [Concomitant]
     Active Substance: PSEUDOEPHEDRINE HYDROCHLORIDE
     Indication: Rheumatoid arthritis
  272. PSEUDOEPHEDRINE HYDROCHLORIDE [Concomitant]
     Active Substance: PSEUDOEPHEDRINE HYDROCHLORIDE
  273. PSEUDOEPHEDRINE HYDROCHLORIDE [Concomitant]
     Active Substance: PSEUDOEPHEDRINE HYDROCHLORIDE
  274. PSEUDOEPHEDRINE HYDROCHLORIDE [Concomitant]
     Active Substance: PSEUDOEPHEDRINE HYDROCHLORIDE
  275. RAMIPRIL [Concomitant]
     Active Substance: RAMIPRIL
     Indication: Rheumatoid arthritis
     Route: 016
  276. RAMIPRIL [Concomitant]
     Active Substance: RAMIPRIL
  277. RAMIPRIL [Concomitant]
     Active Substance: RAMIPRIL
     Route: 042
  278. RANITIDINE [Concomitant]
     Active Substance: RANITIDINE
     Indication: Product used for unknown indication
  279. CETIRIZINE HYDROCHLORIDE\PSEUDOEPHEDRINE HYDROCHLORIDE [Concomitant]
     Active Substance: CETIRIZINE HYDROCHLORIDE\PSEUDOEPHEDRINE HYDROCHLORIDE
     Indication: Rheumatoid arthritis
  280. CETIRIZINE HYDROCHLORIDE\PSEUDOEPHEDRINE HYDROCHLORIDE [Concomitant]
     Active Substance: CETIRIZINE HYDROCHLORIDE\PSEUDOEPHEDRINE HYDROCHLORIDE
     Route: 042
  281. CETIRIZINE HYDROCHLORIDE\PSEUDOEPHEDRINE HYDROCHLORIDE [Concomitant]
     Active Substance: CETIRIZINE HYDROCHLORIDE\PSEUDOEPHEDRINE HYDROCHLORIDE
  282. CETIRIZINE HYDROCHLORIDE\PSEUDOEPHEDRINE HYDROCHLORIDE [Concomitant]
     Active Substance: CETIRIZINE HYDROCHLORIDE\PSEUDOEPHEDRINE HYDROCHLORIDE
  283. CETIRIZINE HYDROCHLORIDE\PSEUDOEPHEDRINE HYDROCHLORIDE [Concomitant]
     Active Substance: CETIRIZINE HYDROCHLORIDE\PSEUDOEPHEDRINE HYDROCHLORIDE
  284. REMICADE [Concomitant]
     Active Substance: INFLIXIMAB
     Indication: Rheumatoid arthritis
     Route: 040
  285. REMICADE [Concomitant]
     Active Substance: INFLIXIMAB
     Route: 058
  286. REMICADE [Concomitant]
     Active Substance: INFLIXIMAB
     Route: 040
  287. REMICADE [Concomitant]
     Active Substance: INFLIXIMAB
     Route: 040
  288. REMICADE [Concomitant]
     Active Substance: INFLIXIMAB
     Route: 042
  289. REMICADE [Concomitant]
     Active Substance: INFLIXIMAB
  290. RITUXIMAB [Concomitant]
     Active Substance: RITUXIMAB
     Indication: Rheumatoid arthritis
     Route: 042
  291. RITUXIMAB [Concomitant]
     Active Substance: RITUXIMAB
  292. RITUXIMAB [Concomitant]
     Active Substance: RITUXIMAB
     Route: 043
  293. RITUXIMAB [Concomitant]
     Active Substance: RITUXIMAB
     Route: 041
  294. RITUXIMAB [Concomitant]
     Active Substance: RITUXIMAB
  295. RITUXIMAB [Concomitant]
     Active Substance: RITUXIMAB
  296. RITUXIMAB [Concomitant]
     Active Substance: RITUXIMAB
     Route: 058
  297. RITUXIMAB [Concomitant]
     Active Substance: RITUXIMAB
  298. RITUXIMAB [Concomitant]
     Active Substance: RITUXIMAB
  299. RITUXIMAB [Concomitant]
     Active Substance: RITUXIMAB
  300. RITUXIMAB [Concomitant]
     Active Substance: RITUXIMAB
     Route: 016
  301. RITUXIMAB [Concomitant]
     Active Substance: RITUXIMAB
     Route: 016
  302. RITUXIMAB [Concomitant]
     Active Substance: RITUXIMAB
     Route: 058
  303. RITUXIMAB [Concomitant]
     Active Substance: RITUXIMAB
     Route: 042
  304. RITUXIMAB [Concomitant]
     Active Substance: RITUXIMAB
     Route: 016
  305. RITUXIMAB [Concomitant]
     Active Substance: RITUXIMAB
     Route: 043
  306. RITUXIMAB [Concomitant]
     Active Substance: RITUXIMAB
     Route: 042
  307. RITUXIMAB [Concomitant]
     Active Substance: RITUXIMAB
     Route: 058
  308. SULFASALAZINE [Concomitant]
     Active Substance: SULFASALAZINE
     Indication: Rheumatoid arthritis
  309. SULFASALAZINE [Concomitant]
     Active Substance: SULFASALAZINE
     Indication: Prostatic specific antigen
  310. SIMPONI [Concomitant]
     Active Substance: GOLIMUMAB
     Indication: Rheumatoid arthritis
     Route: 058
  311. SIMPONI [Concomitant]
     Active Substance: GOLIMUMAB
     Route: 058
  312. SIMPONI [Concomitant]
     Active Substance: GOLIMUMAB
     Route: 058
  313. SIMPONI [Concomitant]
     Active Substance: GOLIMUMAB
     Route: 058
  314. SIMPONI [Concomitant]
     Active Substance: GOLIMUMAB
  315. SIRUKUMAB [Concomitant]
     Active Substance: SIRUKUMAB
     Indication: Product used for unknown indication
  316. GOLD SODIUM THIOMALATE [Concomitant]
     Active Substance: GOLD SODIUM THIOMALATE
     Indication: Product used for unknown indication
     Route: 048
  317. GOLD SODIUM THIOMALATE [Concomitant]
     Active Substance: GOLD SODIUM THIOMALATE
  318. STELARA [Concomitant]
     Active Substance: USTEKINUMAB
     Indication: Product used for unknown indication
     Route: 058
  319. STELARA [Concomitant]
     Active Substance: USTEKINUMAB
     Route: 058
  320. SULFASALAZINE [Concomitant]
     Active Substance: SULFASALAZINE
     Indication: Rheumatoid arthritis
     Route: 058
  321. SULFASALAZINE [Concomitant]
     Active Substance: SULFASALAZINE
  322. SULFASALAZINE [Concomitant]
     Active Substance: SULFASALAZINE
     Route: 048
  323. SULFASALAZINE [Concomitant]
     Active Substance: SULFASALAZINE
     Route: 048
  324. SULFASALAZINE [Concomitant]
     Active Substance: SULFASALAZINE
  325. SULFASALAZINE [Concomitant]
     Active Substance: SULFASALAZINE
     Route: 048
  326. SULFASALAZINE [Concomitant]
     Active Substance: SULFASALAZINE
     Route: 048
  327. SULFASALAZINE [Concomitant]
     Active Substance: SULFASALAZINE
     Route: 048
  328. SULFASALAZINE [Concomitant]
     Active Substance: SULFASALAZINE
     Route: 058
  329. SULFASALAZINE [Concomitant]
     Active Substance: SULFASALAZINE
     Route: 048
  330. SULFASALAZINE [Concomitant]
     Active Substance: SULFASALAZINE
  331. SULFASALAZINE [Concomitant]
     Active Substance: SULFASALAZINE
     Route: 048
  332. SULFASALAZINE [Concomitant]
     Active Substance: SULFASALAZINE
     Route: 048
  333. TOCILIZUMAB [Concomitant]
     Active Substance: TOCILIZUMAB
     Indication: Rheumatoid arthritis
     Route: 042
  334. TOCILIZUMAB [Concomitant]
     Active Substance: TOCILIZUMAB
  335. TOCILIZUMAB [Concomitant]
     Active Substance: TOCILIZUMAB
  336. TOCILIZUMAB [Concomitant]
     Active Substance: TOCILIZUMAB
     Route: 058
  337. TOCILIZUMAB [Concomitant]
     Active Substance: TOCILIZUMAB
     Route: 042
  338. TOCILIZUMAB [Concomitant]
     Active Substance: TOCILIZUMAB
     Route: 058
  339. TOCILIZUMAB [Concomitant]
     Active Substance: TOCILIZUMAB
     Route: 058
  340. TOCILIZUMAB [Concomitant]
     Active Substance: TOCILIZUMAB
     Route: 058
  341. TOCILIZUMAB [Concomitant]
     Active Substance: TOCILIZUMAB
     Route: 058
  342. TOCILIZUMAB [Concomitant]
     Active Substance: TOCILIZUMAB
     Route: 058
  343. TOCILIZUMAB [Concomitant]
     Active Substance: TOCILIZUMAB
     Route: 058
  344. TOCILIZUMAB [Concomitant]
     Active Substance: TOCILIZUMAB
  345. TOCILIZUMAB [Concomitant]
     Active Substance: TOCILIZUMAB
     Route: 042
  346. TOCILIZUMAB [Concomitant]
     Active Substance: TOCILIZUMAB
  347. TOCILIZUMAB [Concomitant]
     Active Substance: TOCILIZUMAB
     Route: 042
  348. TOCILIZUMAB [Concomitant]
     Active Substance: TOCILIZUMAB
  349. TOCILIZUMAB [Concomitant]
     Active Substance: TOCILIZUMAB
  350. TOCILIZUMAB [Concomitant]
     Active Substance: TOCILIZUMAB
     Route: 042
  351. TOCILIZUMAB [Concomitant]
     Active Substance: TOCILIZUMAB
     Route: 016
  352. TOFACITINIB CITRATE [Concomitant]
     Active Substance: TOFACITINIB CITRATE
     Indication: Rheumatoid arthritis
     Route: 048
  353. TOFACITINIB CITRATE [Concomitant]
     Active Substance: TOFACITINIB CITRATE
     Route: 048
  354. TOPIRAMATE [Concomitant]
     Active Substance: TOPIRAMATE
     Indication: Migraine
  355. TOPIRAMATE [Concomitant]
     Active Substance: TOPIRAMATE
  356. TOPIRAMATE [Concomitant]
     Active Substance: TOPIRAMATE
  357. TRAMADOL HYDROCHLORIDE [Concomitant]
     Active Substance: TRAMADOL HYDROCHLORIDE
     Indication: Product used for unknown indication
  358. USTEKINUMAB [Concomitant]
     Active Substance: USTEKINUMAB
     Indication: Product used for unknown indication
     Route: 058
  359. USTEKINUMAB [Concomitant]
     Active Substance: USTEKINUMAB
  360. VITAMIN C [Concomitant]
     Active Substance: ASCORBIC ACID
     Indication: Product used for unknown indication
  361. VITAMIN D3 [Concomitant]
     Active Substance: CHOLECALCIFEROL
     Indication: Product used for unknown indication
  362. XELJANZ [Concomitant]
     Active Substance: TOFACITINIB CITRATE
     Indication: Rheumatoid arthritis
  363. XELJANZ [Concomitant]
     Active Substance: TOFACITINIB CITRATE
  364. XELJANZ [Concomitant]
     Active Substance: TOFACITINIB CITRATE
  365. CALCIUM ASCORBATE [Concomitant]
     Active Substance: CALCIUM ASCORBATE
     Indication: Product used for unknown indication
  366. GOLD [Concomitant]
     Active Substance: GOLD
     Indication: Product used for unknown indication
  367. HYDROCORTISONE BUTYRATE [Concomitant]
     Active Substance: HYDROCORTISONE BUTYRATE
     Indication: Rheumatoid arthritis
  368. MEGLUMINE [Concomitant]
     Active Substance: MEGLUMINE
     Indication: Product used for unknown indication
     Route: 042
  369. MEGLUMINE [Concomitant]
     Active Substance: MEGLUMINE
  370. XELJANZ [Concomitant]
     Active Substance: TOFACITINIB CITRATE
     Indication: Rheumatoid arthritis
     Dosage: INTRAARTICULAR
     Route: 048
  371. XELJANZ [Concomitant]
     Active Substance: TOFACITINIB CITRATE
     Dosage: INTRAARTICULAR
     Route: 048
  372. XELJANZ [Concomitant]
     Active Substance: TOFACITINIB CITRATE
     Dosage: INTRAARTICULAR
     Route: 048
  373. XELJANZ [Concomitant]
     Active Substance: TOFACITINIB CITRATE
  374. XELJANZ [Concomitant]
     Active Substance: TOFACITINIB CITRATE
     Dosage: INTRAARTICULAR
     Route: 048
  375. XELJANZ [Concomitant]
     Active Substance: TOFACITINIB CITRATE
  376. XELJANZ [Concomitant]
     Active Substance: TOFACITINIB CITRATE
     Dosage: INTRAARTICULAR
     Route: 048
  377. XELJANZ [Concomitant]
     Active Substance: TOFACITINIB CITRATE
     Dosage: INTRAARTICULAR
     Route: 048
  378. XELJANZ [Concomitant]
     Active Substance: TOFACITINIB CITRATE
     Dosage: INTRAARTICULAR
     Route: 048
  379. XELJANZ [Concomitant]
     Active Substance: TOFACITINIB CITRATE
     Dosage: INTRAARTICULAR
     Route: 048
  380. XELJANZ [Concomitant]
     Active Substance: TOFACITINIB CITRATE
     Dosage: INTRAARTICULAR
     Route: 048
  381. XELJANZ [Concomitant]
     Active Substance: TOFACITINIB CITRATE
     Dosage: INTRAARTICULAR
     Route: 048
  382. AZATHIOPRINE [Concomitant]
     Active Substance: AZATHIOPRINE
     Indication: Product used for unknown indication
  383. CELECOXIB [Concomitant]
     Active Substance: CELECOXIB
     Indication: Product used for unknown indication
     Route: 048
  384. CELECOXIB [Concomitant]
     Active Substance: CELECOXIB
  385. CHLORHEXIDINE GLUCONATE [Concomitant]
     Active Substance: CHLORHEXIDINE GLUCONATE
     Indication: Product used for unknown indication
  386. CHLORHEXIDINE GLUCONATE [Concomitant]
     Active Substance: CHLORHEXIDINE GLUCONATE
  387. CHLORHEXIDINE GLUCONATE [Concomitant]
     Active Substance: CHLORHEXIDINE GLUCONATE
     Route: 061
  388. CHOLECALCIFEROL [Concomitant]
     Active Substance: CHOLECALCIFEROL
     Indication: Product used for unknown indication
  389. ERGOCALCIFEROL [Concomitant]
     Active Substance: ERGOCALCIFEROL
     Indication: Product used for unknown indication
  390. HYRIMOZ [Concomitant]
     Active Substance: ADALIMUMAB-ADAZ
     Indication: Product used for unknown indication
     Route: 058
  391. HYRIMOZ [Concomitant]
     Active Substance: ADALIMUMAB-ADAZ
  392. HYRIMOZ [Concomitant]
     Active Substance: ADALIMUMAB-ADAZ
     Route: 058
  393. OTEZLA [Concomitant]
     Active Substance: APREMILAST
     Indication: Product used for unknown indication
  394. OTEZLA [Concomitant]
     Active Substance: APREMILAST
  395. COCOA BUTTER\PHENYLEPHRINE HYDROCHLORIDE [Concomitant]
     Active Substance: COCOA BUTTER\PHENYLEPHRINE HYDROCHLORIDE
     Indication: Rheumatoid arthritis
  396. APREMILAST [Concomitant]
     Active Substance: APREMILAST
     Indication: Product used for unknown indication
  397. APREMILAST [Concomitant]
     Active Substance: APREMILAST
  398. ATOMOXETINE HYDROCHLORIDE [Concomitant]
     Active Substance: ATOMOXETINE HYDROCHLORIDE
     Indication: Migraine
  399. DICLOFENAC SODIUM [Concomitant]
     Active Substance: DICLOFENAC SODIUM
     Indication: Product used for unknown indication
  400. DICLOFENAC SODIUM [Concomitant]
     Active Substance: DICLOFENAC SODIUM
  401. DICLOFENAC SODIUM [Concomitant]
     Active Substance: DICLOFENAC SODIUM
     Route: 058
  402. HYDROCORTISONE [Concomitant]
     Active Substance: HYDROCORTISONE
     Indication: Product used for unknown indication
  403. LEFLUNOMIDE [Concomitant]
     Active Substance: LEFLUNOMIDE
     Indication: Product used for unknown indication
  404. LEFLUNOMIDE [Concomitant]
     Active Substance: LEFLUNOMIDE
     Route: 058
  405. LEFLUNOMIDE [Concomitant]
     Active Substance: LEFLUNOMIDE
     Route: 013
  406. LEFLUNOMIDE [Concomitant]
     Active Substance: LEFLUNOMIDE
     Route: 048
  407. LEFLUNOMIDE [Concomitant]
     Active Substance: LEFLUNOMIDE
  408. LEFLUNOMIDE [Concomitant]
     Active Substance: LEFLUNOMIDE
     Route: 048
  409. LEFLUNOMIDE [Concomitant]
     Active Substance: LEFLUNOMIDE
     Route: 048
  410. LEFLUNOMIDE [Concomitant]
     Active Substance: LEFLUNOMIDE
     Route: 048
  411. LEFLUNOMIDE [Concomitant]
     Active Substance: LEFLUNOMIDE
     Route: 013
  412. LEFLUNOMIDE [Concomitant]
     Active Substance: LEFLUNOMIDE
     Route: 048
  413. LEFLUNOMIDE [Concomitant]
     Active Substance: LEFLUNOMIDE
     Route: 048
  414. LEFLUNOMIDE [Concomitant]
     Active Substance: LEFLUNOMIDE
     Route: 058
  415. LEFLUNOMIDE [Concomitant]
     Active Substance: LEFLUNOMIDE
  416. LEFLUNOMIDE [Concomitant]
     Active Substance: LEFLUNOMIDE
  417. LEFLUNOMIDE [Concomitant]
     Active Substance: LEFLUNOMIDE
     Route: 048
  418. LEFLUNOMIDE [Concomitant]
     Active Substance: LEFLUNOMIDE
  419. LEFLUNOMIDE [Concomitant]
     Active Substance: LEFLUNOMIDE
     Route: 048
  420. LEFLUNOMIDE [Concomitant]
     Active Substance: LEFLUNOMIDE
     Route: 048
  421. LEFLUNOMIDE [Concomitant]
     Active Substance: LEFLUNOMIDE
     Route: 048
  422. LEFLUNOMIDE [Concomitant]
     Active Substance: LEFLUNOMIDE
  423. LEFLUNOMIDE [Concomitant]
     Active Substance: LEFLUNOMIDE
  424. LEFLUNOMIDE [Concomitant]
     Active Substance: LEFLUNOMIDE
  425. LEFLUNOMIDE [Concomitant]
     Active Substance: LEFLUNOMIDE
     Route: 013
  426. LEFLUNOMIDE [Concomitant]
     Active Substance: LEFLUNOMIDE
  427. LEFLUNOMIDE [Concomitant]
     Active Substance: LEFLUNOMIDE
     Route: 048
  428. LEFLUNOMIDE [Concomitant]
     Active Substance: LEFLUNOMIDE
  429. LEFLUNOMIDE [Concomitant]
     Active Substance: LEFLUNOMIDE
     Route: 016
  430. LEFLUNOMIDE [Concomitant]
     Active Substance: LEFLUNOMIDE
     Route: 048
  431. LEFLUNOMIDE [Concomitant]
     Active Substance: LEFLUNOMIDE
  432. LEFLUNOMIDE [Concomitant]
     Active Substance: LEFLUNOMIDE
     Route: 048
  433. LEFLUNOMIDE [Concomitant]
     Active Substance: LEFLUNOMIDE
     Route: 058

REACTIONS (1)
  - Death [Fatal]
